FAERS Safety Report 6907557-7 (Version None)
Quarter: 2010Q3

REPORT INFORMATION
  Report Type: 
  Country: None (occurrence: None)
  Receive Date: 20100805
  Receipt Date: 20100728
  Transmission Date: 20110219
  Serious: No
  Sender: FDA-Public Use
  Company Number: US-BIOGENIDEC-2010BI026164

PATIENT
  Age: 33 Year
  Sex: Female

DRUGS (1)
  1. TYSABRI [Suspect]
     Indication: MULTIPLE SCLEROSIS
     Route: 042
     Dates: start: 20080728

REACTIONS (8)
  - AURICULAR SWELLING [None]
  - EAR INFECTION [None]
  - EAR PAIN [None]
  - FATIGUE [None]
  - INFLUENZA [None]
  - MENOPAUSE [None]
  - NERVOUS SYSTEM DISORDER [None]
  - PARANASAL SINUS HYPERSECRETION [None]
